FAERS Safety Report 6144047-6 (Version None)
Quarter: 2009Q2

REPORT INFORMATION
  Report Type: 
  Country: None (occurrence: None)
  Receive Date: 20090406
  Receipt Date: 20090401
  Transmission Date: 20091009
  Serious: Yes (Hospitalization, Other)
  Sender: FDA-Public Use
  Company Number: US-AMGEN-QUU307685

PATIENT
  Sex: Female

DRUGS (10)
  1. ARANESP [Suspect]
     Indication: RENAL FAILURE CHRONIC
     Route: 058
     Dates: start: 20080825, end: 20080825
  2. PROCRIT [Suspect]
     Indication: RENAL FAILURE CHRONIC
  3. NIFEDIPINE [Suspect]
     Route: 048
  4. DIOVAN [Suspect]
     Route: 048
  5. ASPIRIN [Concomitant]
  6. LEVOTHYROXINE SODIUM [Concomitant]
     Route: 048
  7. FERROUS SULFATE TAB [Concomitant]
     Route: 048
  8. VITAMIN B-12 [Concomitant]
  9. VITAMIN B COMPLEX CAP [Concomitant]
  10. FOLATE SODIUM [Concomitant]

REACTIONS (9)
  - ALTERED STATE OF CONSCIOUSNESS [None]
  - AORTIC VALVE STENOSIS [None]
  - ARRHYTHMIA [None]
  - ATRIAL FLUTTER [None]
  - BLOOD PRESSURE DECREASED [None]
  - CARDIAC FIBRILLATION [None]
  - CAROTID ARTERY STENOSIS [None]
  - HYPOTHYROIDISM [None]
  - TRANSIENT ISCHAEMIC ATTACK [None]
